FAERS Safety Report 21910992 (Version 1)
Quarter: 2023Q1

REPORT INFORMATION
  Report Type: Spontaneous
  Country: US (occurrence: US)
  Receive Date: 20230125
  Receipt Date: 20230125
  Transmission Date: 20230417
  Serious: Yes (Hospitalization, Other)
  Sender: FDA-Public Use
  Company Number: US-ADVANZ PHARMA-202301000449

PATIENT

DRUGS (1)
  1. HYDROXYCHLOROQUINE [Suspect]
     Active Substance: HYDROXYCHLOROQUINE
     Dosage: 20 G

REACTIONS (6)
  - Peripheral ischaemia [Recovering/Resolving]
  - Vasoplegia syndrome [Recovering/Resolving]
  - Disease recurrence [Recovering/Resolving]
  - Ventricular tachycardia [Recovering/Resolving]
  - Cardiac arrest [Recovering/Resolving]
  - Intentional overdose [Recovering/Resolving]
